FAERS Safety Report 6956127-3 (Version None)
Quarter: 2010Q3

REPORT INFORMATION
  Report Type: 
  Country: None (occurrence: None)
  Receive Date: 20100830
  Receipt Date: 20091203
  Transmission Date: 20110219
  Serious: No
  Sender: FDA-Public Use
  Company Number: US-BAUSCH-2009BL006428

PATIENT
  Age: 75 Year
  Sex: Female

DRUGS (3)
  1. CROMOLYN SODIUM [Suspect]
     Indication: NASAL CONGESTION
     Route: 045
     Dates: start: 20091130, end: 20091130
  2. CROMOLYN SODIUM [Suspect]
     Route: 045
     Dates: start: 20091203, end: 20091203
  3. PLAVIX [Concomitant]

REACTIONS (5)
  - ABASIA [None]
  - HYPOAESTHESIA [None]
  - PAIN IN EXTREMITY [None]
  - PARAESTHESIA [None]
  - RASH GENERALISED [None]
